FAERS Safety Report 14895128 (Version 2)
Quarter: 2018Q4

REPORT INFORMATION
  Report Type: Spontaneous
  Country: FR (occurrence: FR)
  Receive Date: 20180515
  Receipt Date: 20181026
  Transmission Date: 20190204
  Serious: Yes (Other)
  Sender: FDA-Public Use
  Company Number: FR-MERCK KGAA-2047735

PATIENT
  Age: 50 Year
  Sex: Male

DRUGS (1)
  1. EUTHYROX [Suspect]
     Active Substance: LEVOTHYROXINE SODIUM
     Indication: PRODUCT USED FOR UNKNOWN INDICATION

REACTIONS (16)
  - Migraine [None]
  - Decreased activity [None]
  - Disturbance in attention [None]
  - Hyperhidrosis [None]
  - Insomnia [None]
  - Decreased interest [None]
  - Irritability [None]
  - Nervousness [None]
  - Weight decreased [None]
  - Hyperthyroidism [None]
  - Depression [None]
  - Diarrhoea [None]
  - Vertigo [None]
  - Loss of libido [None]
  - Social avoidant behaviour [None]
  - Fatigue [None]

NARRATIVE: CASE EVENT DATE: 20170621
